FAERS Safety Report 7584334-8 (Version None)
Quarter: 2011Q2

REPORT INFORMATION
  Report Type: 
  Country: None (occurrence: None)
  Receive Date: 20110630
  Receipt Date: 20110616
  Transmission Date: 20111010
  Serious: Yes (Hospitalization)
  Sender: FDA-Public Use
  Company Number: US-UCBSA-035628

PATIENT
  Sex: Male
  Weight: 71.21 kg

DRUGS (4)
  1. CIMZIA [Suspect]
     Indication: CROHN'S DISEASE
     Route: 058
     Dates: start: 20110425
  2. ACETAMINOPHEN [Concomitant]
  3. MESALAMINE [Concomitant]
     Dates: start: 20110105
  4. BUDESONIDE [Concomitant]
     Dates: start: 20110106

REACTIONS (2)
  - ABDOMINAL ABSCESS [None]
  - FISTULA [None]
